FAERS Safety Report 9669476 (Version 1)
Quarter: 2013Q4

REPORT INFORMATION
  Report Type: Spontaneous
  Country: FR (occurrence: FR)
  Receive Date: 20131105
  Receipt Date: 20131105
  Transmission Date: 20140711
  Serious: Yes (Hospitalization, Other)
  Sender: FDA-Public Use
  Company Number: FR-ASTRAZENECA-2013SE79823

PATIENT
  Age: 53 Year
  Sex: Female

DRUGS (22)
  1. ZOMIG [Suspect]
     Indication: MIGRAINE
     Route: 048
  2. MEDIATOR [Suspect]
     Indication: DECREASED APPETITE
     Route: 048
     Dates: start: 2006, end: 2009
  3. ISOMERIDE [Suspect]
     Indication: DECREASED APPETITE
     Route: 048
     Dates: start: 1990
  4. ANOREX [Suspect]
     Indication: DECREASED APPETITE
     Route: 048
  5. TENUATE DOSPAN [Suspect]
     Indication: DECREASED APPETITE
     Route: 048
  6. SEGLOR [Suspect]
     Indication: MIGRAINE
     Route: 048
  7. MAXALT [Suspect]
     Indication: MIGRAINE
     Route: 048
  8. NARAMIG [Suspect]
     Indication: MIGRAINE
     Route: 048
  9. LEXOMIL [Concomitant]
  10. CRESTOR [Concomitant]
     Route: 048
     Dates: start: 2008
  11. ATURGYL [Concomitant]
     Dosage: AT LEAST ONE INTAKE
  12. RHINOFLUIMUCIL [Concomitant]
     Dosage: AT LEAST ONE INTAKE
  13. ACTIFED [Concomitant]
  14. RHINADVIL [Concomitant]
  15. MINIDRIL [Concomitant]
  16. XANAX [Concomitant]
     Dosage: HIGH DOSE FOR AT LEAST FIVE YEARS TO JUNE OR NOVEMBER 2012
  17. CYMBALTA [Concomitant]
     Dates: end: 201211
  18. TEMERIT [Concomitant]
     Dates: end: 201206
  19. PROCORALAN [Concomitant]
  20. APROVEL [Concomitant]
  21. LASILIX [Concomitant]
  22. ZANIDIP [Concomitant]

REACTIONS (2)
  - Pulmonary arterial hypertension [Not Recovered/Not Resolved]
  - Diaphragmatic paralysis [Unknown]
